FAERS Safety Report 5088511-X (Version None)
Quarter: 2006Q3

REPORT INFORMATION
  Report Type: 
  Country: None (occurrence: None)
  Receive Date: 20060822
  Receipt Date: 20060808
  Transmission Date: 20061208
  Serious: Yes (Other)
  Sender: FDA-Public Use
  Company Number: 2006AL002230

PATIENT
  Age: 18 Year
  Sex: Male

DRUGS (1)
  1. IBUPROFEN [Suspect]
     Dosage: 2800 MG, X1 PO
     Route: 048

REACTIONS (2)
  - INTENTIONAL SELF-INJURY [None]
  - PANCREATITIS ACUTE [None]
